FAERS Safety Report 9426819 (Version 1)
Quarter: 2013Q3

REPORT INFORMATION
  Report Type: Spontaneous
  Country: US (occurrence: US)
  Receive Date: 20130730
  Receipt Date: 20130730
  Transmission Date: 20140515
  Serious: No
  Sender: FDA-Public Use
  Company Number: US-SANOFI-AVENTIS-2013SA038844

PATIENT
  Sex: Female

DRUGS (2)
  1. AMBIEN [Suspect]
     Dosage: TAKEN FROM: SEVERAL YEARS
     Route: 048
  2. AMBIEN [Suspect]
     Route: 048

REACTIONS (2)
  - Feeling abnormal [Unknown]
  - Wrong technique in drug usage process [Unknown]
